FAERS Safety Report 16066963 (Version 1)
Quarter: 2019Q2

REPORT INFORMATION
  Report Type: Spontaneous
  Country: US (occurrence: US)
  Receive Date: 20190313
  Receipt Date: 20190313
  Transmission Date: 20190711
  Serious: Yes (Other)
  Sender: FDA-Public Use
  Company Number: None

PATIENT
  Age: 27 Year
  Sex: Female
  Weight: 105.23 kg

DRUGS (1)
  1. MIRENA [Suspect]
     Active Substance: LEVONORGESTREL

REACTIONS (7)
  - Dysstasia [None]
  - Migraine [None]
  - Vision blurred [None]
  - Gait disturbance [None]
  - Pain [None]
  - Depression [None]
  - Embedded device [None]

NARRATIVE: CASE EVENT DATE: 20180417
